FAERS Safety Report 18170074 (Version 1)
Quarter: 2020Q3

REPORT INFORMATION
  Report Type: Spontaneous
  Country: US (occurrence: US)
  Receive Date: 20200819
  Receipt Date: 20200819
  Transmission Date: 20201103
  Serious: Yes (Hospitalization)
  Sender: FDA-Public Use
  Company Number: None

PATIENT
  Age: 58 Year
  Sex: Male
  Weight: 77.1 kg

DRUGS (9)
  1. CALCITRIOL 0.25 MCG [Concomitant]
     Active Substance: CALCITRIOL
  2. LISINOPRIL 40 MG [Concomitant]
     Active Substance: LISINOPRIL
  3. METOPROLOL SUCCINATE 200 MG [Concomitant]
  4. OMEPRAZOLE 20 MG [Concomitant]
     Active Substance: OMEPRAZOLE
  5. CALCIUM + D [Concomitant]
     Active Substance: CALCIUM\VITAMIN D
  6. RIVAROXABAN [Suspect]
     Active Substance: RIVAROXABAN
     Indication: MESENTERIC ARTERY THROMBOSIS
     Route: 048
     Dates: start: 20161123, end: 20200715
  7. ASPIRIN 81 MG [Concomitant]
     Active Substance: ASPIRIN
  8. FENOFIBRATE 145 MG [Concomitant]
     Active Substance: FENOFIBRATE
  9. FISH OIL [Concomitant]
     Active Substance: FISH OIL

REACTIONS (5)
  - Creatinine renal clearance decreased [None]
  - Pulmonary embolism [None]
  - Chest pain [None]
  - Drug level decreased [None]
  - Labelled drug-food interaction medication error [None]

NARRATIVE: CASE EVENT DATE: 20200716
